FAERS Safety Report 11318419 (Version 3)
Quarter: 2016Q3

REPORT INFORMATION
  Report Type: Spontaneous
  Country: BR (occurrence: BR)
  Receive Date: 20150728
  Receipt Date: 20160719
  Transmission Date: 20161109
  Serious: Yes (Other)
  Sender: FDA-Public Use
  Company Number: BR-AMGEN-BRASP2015075342

PATIENT
  Age: 8 Year
  Sex: Male
  Weight: 63 kg

DRUGS (28)
  1. MELOXICAM. [Concomitant]
     Active Substance: MELOXICAM
     Indication: JUVENILE IDIOPATHIC ARTHRITIS
     Dosage: ONE TABLET (15 MG), DAILY
  2. MELOXICAM. [Concomitant]
     Active Substance: MELOXICAM
     Dosage: ONE TABLET (15 MG), DAILY
  3. LORATADINE. [Concomitant]
     Active Substance: LORATADINE
     Dosage: ONE TABLET (10 MG), DAILY
  4. DEXAMETHASONE. [Concomitant]
     Active Substance: DEXAMETHASONE
     Dosage: UNSPECIFIED DOSE, AS NEEDED
  5. SULFASALAZINE. [Concomitant]
     Active Substance: SULFASALAZINE
     Indication: JUVENILE IDIOPATHIC ARTHRITIS
     Dosage: 5 TABLETS (2500 MG), DAILY
  6. OMEPRAZOLE. [Concomitant]
     Active Substance: OMEPRAZOLE
     Dosage: 2 TABLETS (40 MG), DAILY
  7. LORATADINE. [Concomitant]
     Active Substance: LORATADINE
     Indication: ALLERGY TO ARTHROPOD STING
     Dosage: UNK
  8. DESLORATADINE. [Concomitant]
     Active Substance: DESLORATADINE
     Indication: ALLERGY TO ARTHROPOD STING
     Dosage: 5 ML, DAILY
  9. DESLORATADINE. [Concomitant]
     Active Substance: DESLORATADINE
     Dosage: 5 ML, DAILY
  10. FLORATIL                           /00838001/ [Concomitant]
     Dosage: UNK
  11. SULFASALAZINE. [Concomitant]
     Active Substance: SULFASALAZINE
     Dosage: 5 TABLETS (2500 MG), DAILY
  12. LORATADINE. [Concomitant]
     Active Substance: LORATADINE
     Indication: ALLERGIC RESPIRATORY DISEASE
     Dosage: ONE TABLET (10 MG), DAILY
  13. DESLORATADINE. [Concomitant]
     Active Substance: DESLORATADINE
     Dosage: 5 ML, DAILY
  14. SERETIDE [Concomitant]
     Active Substance: FLUTICASONE PROPIONATE\SALMETEROL XINAFOATE
     Indication: ASTHMA
     Dosage: NOT CLEAR TO BE UNSPECIFIED DOSE, TWICE PER DAY OR TWO UNITS (125MG EACH) PER DAY
  15. AVAMYS [Concomitant]
     Active Substance: FLUTICASONE FUROATE
     Indication: ASTHMA
     Dosage: UNSPECIFIED DOSE, 2X/DAY
  16. PATANOL [Concomitant]
     Active Substance: OLOPATADINE HYDROCHLORIDE
     Indication: EYE PRURITUS
     Dosage: 1 DROP PER DAY, DAILY, AS NEEDED (IF THERE WAS ITCHING IN THE EYES)
  17. ADDERA D3 [Concomitant]
     Active Substance: CHOLECALCIFEROL
     Indication: VITAMIN SUPPLEMENTATION
     Dosage: 1 TABLET (700 MG), WEEKLY
  18. SULFASALAZINE. [Concomitant]
     Active Substance: SULFASALAZINE
     Dosage: 5 TABLETS (2500 MG), DAILY
  19. DESLORATADINE. [Concomitant]
     Active Substance: DESLORATADINE
     Dosage: UNK
  20. DEXAMETHASONE. [Concomitant]
     Active Substance: DEXAMETHASONE
     Indication: ASTHMA
     Dosage: UNSPECIFIED DOSE, AS NEEDED
  21. OMEPRAZOLE. [Concomitant]
     Active Substance: OMEPRAZOLE
     Dosage: 2 TABLETS (40 MG), DAILY
  22. DEXAMETHASONE. [Concomitant]
     Active Substance: DEXAMETHASONE
     Dosage: UNSPECIFIED DOSE, AS NEEDED
  23. SALBUTAMOL [Concomitant]
     Active Substance: ALBUTEROL
     Dosage: UNK
  24. ENBREL [Suspect]
     Active Substance: ETANERCEPT
     Indication: JUVENILE IDIOPATHIC ARTHRITIS
     Dosage: 50 MG, ONCE WEEKLY
     Route: 058
     Dates: start: 201503
  25. MELOXICAM. [Concomitant]
     Active Substance: MELOXICAM
     Dosage: ONE TABLET (15 MG), DAILY
  26. OMEPRAZOLE. [Concomitant]
     Active Substance: OMEPRAZOLE
     Dosage: 2 TABLETS (40 MG), DAILY
  27. LORATADINE. [Concomitant]
     Active Substance: LORATADINE
     Dosage: ONE TABLET (10 MG), DAILY
  28. SYSTANE (HYPROMELLOSE 2910 (4000 MPA.S)) [Concomitant]
     Active Substance: HYPROMELLOSE 2910 (4000 MPA.S)
     Dosage: 1 DROP (UNSPECIFIED DOSE), 4X/DAY (EVERY 6 HOURS)

REACTIONS (7)
  - Asthmatic crisis [Recovered/Resolved]
  - Rhinorrhoea [Not Recovered/Not Resolved]
  - Nasopharyngitis [Unknown]
  - Condition aggravated [Recovered/Resolved]
  - Pyrexia [Recovered/Resolved]
  - Cough [Not Recovered/Not Resolved]
  - Influenza [Recovered/Resolved]

NARRATIVE: CASE EVENT DATE: 2015
